FAERS Safety Report 8402682-6 (Version None)
Quarter: 2012Q2

REPORT INFORMATION
  Report Type: 
  Country: None (occurrence: None)
  Receive Date: 20120601
  Receipt Date: 20120528
  Transmission Date: 20120825
  Serious: Yes (Death)
  Sender: FDA-Public Use
  Company Number: RS-ROCHE-1069579

PATIENT
  Sex: Male

DRUGS (1)
  1. XELODA [Suspect]
     Indication: RECTAL CANCER
     Dosage: CYCLE II
     Route: 048
     Dates: start: 20120421, end: 20120504

REACTIONS (1)
  - DIARRHOEA [None]
